FAERS Safety Report 6747154-X (Version None)
Quarter: 2010Q2

REPORT INFORMATION
  Report Type: 
  Country: None (occurrence: None)
  Receive Date: 20100528
  Receipt Date: 20100517
  Transmission Date: 20101027
  Serious: Yes (Other)
  Sender: FDA-Public Use
  Company Number: US-PFIZER INC-2010018954

PATIENT
  Sex: Male
  Weight: 107.04 kg

DRUGS (8)
  1. TOVIAZ [Suspect]
     Indication: HYPERTONIC BLADDER
     Dosage: 4 MG, 1X/DAY
     Dates: start: 20090801, end: 20090903
  2. TOVIAZ [Suspect]
     Dosage: 8 MG, UNK
  3. WARFARIN [Suspect]
     Dosage: 5 MG, 1X/DAY
     Route: 048
     Dates: start: 20100101
  4. DIAZEPAM [Concomitant]
     Dosage: 2 MG, UNK
  5. SKELAXIN [Concomitant]
     Dosage: 800 MG, UNK
     Route: 048
  6. DARVOCET-N 100 [Concomitant]
     Dosage: 650 MG, UNK
  7. ACETAMINOPHEN AND HYDROCODONE BITARTRATE [Concomitant]
     Dosage: 7.5/750MG
     Route: 048
  8. NEXIUM [Concomitant]
     Dosage: UNK

REACTIONS (12)
  - ASTHENIA [None]
  - HEART RATE IRREGULAR [None]
  - HYPERLIPIDAEMIA [None]
  - HYPERTENSION [None]
  - MUSCULOSKELETAL DISORDER [None]
  - NEURALGIA [None]
  - NON-CARDIAC CHEST PAIN [None]
  - OEDEMA [None]
  - OVERWEIGHT [None]
  - PALPITATIONS [None]
  - RADICULAR SYNDROME [None]
  - TACHYCARDIA [None]
